FAERS Safety Report 6071986-7 (Version None)
Quarter: 2009Q1

REPORT INFORMATION
  Report Type: 
  Country: None (occurrence: None)
  Receive Date: 20090210
  Receipt Date: 20090204
  Transmission Date: 20090719
  Serious: Yes (Hospitalization)
  Sender: FDA-Public Use
  Company Number: US-BIOGENIDEC-2008BI030220

PATIENT
  Age: 55 Year
  Sex: Female

DRUGS (2)
  1. AVONEX [Suspect]
     Indication: MULTIPLE SCLEROSIS
     Route: 030
     Dates: start: 20070922
  2. AVONEX [Suspect]
     Route: 030
     Dates: start: 20071001

REACTIONS (3)
  - DEHYDRATION [None]
  - PYELONEPHRITIS [None]
  - URINARY TRACT INFECTION [None]
